FAERS Safety Report 16723958 (Version 1)
Quarter: 2019Q3

REPORT INFORMATION
  Report Type: Spontaneous
  Country: US (occurrence: US)
  Receive Date: 20190703
  Receipt Date: 20190703
  Transmission Date: 20191005
  Serious: No
  Sender: FDA-Public Use
  Company Number: None

PATIENT
  Age: 23 Year
  Sex: Female

DRUGS (1)
  1. SIMPONI [Suspect]
     Active Substance: GOLIMUMAB
     Indication: COLITIS ULCERATIVE
     Dates: start: 201811, end: 20190703

REACTIONS (4)
  - Staphylococcal infection [None]
  - Rash [None]
  - Influenza like illness [None]
  - Skin infection [None]

NARRATIVE: CASE EVENT DATE: 20181108
